FAERS Safety Report 15618441 (Version 1)
Quarter: 2018Q4

REPORT INFORMATION
  Report Type: Spontaneous
  Country: US (occurrence: US)
  Receive Date: 20181114
  Receipt Date: 20181114
  Transmission Date: 20190205
  Serious: No
  Sender: FDA-Public Use
  Company Number: US-PFIZER INC-2018456908

PATIENT
  Age: 71 Year
  Sex: Female

DRUGS (1)
  1. GENOTROPIN MQ [Suspect]
     Active Substance: SOMATROPIN
     Dosage: 0.6 MG, ALTERNATE DAY

REACTIONS (10)
  - Breast tenderness [Unknown]
  - Haemoglobin decreased [Unknown]
  - Blood urea nitrogen/creatinine ratio increased [Unknown]
  - Mean cell haemoglobin decreased [Unknown]
  - Red cell distribution width increased [Unknown]
  - Pain [Unknown]
  - Peripheral coldness [Unknown]
  - Polyuria [Unknown]
  - Hyperaesthesia [Unknown]
  - Mean cell haemoglobin concentration decreased [Unknown]
